FAERS Safety Report 10333347 (Version 1)
Quarter: 2014Q3

REPORT INFORMATION
  Report Type: Spontaneous
  Country: JP (occurrence: JP)
  Receive Date: 20140722
  Receipt Date: 20140722
  Transmission Date: 20150326
  Serious: Yes (Death)
  Sender: FDA-Public Use
  Company Number: PHHY2012JP132595

PATIENT

DRUGS (1)
  1. AFINITOR [Suspect]
     Active Substance: EVEROLIMUS
     Dosage: 5 MG,
     Dates: start: 20120305

REACTIONS (3)
  - Death [Fatal]
  - Interstitial lung disease [Recovered/Resolved]
  - Disease progression [Unknown]
